FAERS Safety Report 8768737 (Version 2)
Quarter: 2012Q4

REPORT INFORMATION
  Report Type: 
  Country: PL (occurrence: PL)
  Receive Date: 20120905
  Receipt Date: 20120914
  Transmission Date: 20130627
  Serious: Yes (Other)
  Sender: FDA-Public Use
  Company Number: PL-BAXTER-2012BAX016301

PATIENT
  Age: 36 Year
  Sex: Female

DRUGS (8)
  1. KIOVIG 100 MG/ML SOLUTION FOR INFUSION INTRAVENOUS USE VIAL (GLASS) 30 [Suspect]
     Indication: HELLP SYNDROME
     Dosage: TOTAL DOSE 2 G/KG
     Route: 042
  2. ENOXAPARIN [Suspect]
     Indication: HELLP SYNDROME
     Route: 058
  3. ENOXAPARIN [Suspect]
     Indication: SYSTEMIC LUPUS ERYTHEMATOSUS
     Route: 058
  4. FUROSEMIDE [Suspect]
     Indication: HYPOTENSION
  5. METHYLDOPA [Suspect]
     Indication: HYPOTENSION
  6. MAGNESIUM SULFATE [Suspect]
     Indication: HYPOTENSION
  7. PREDNISONE [Suspect]
     Indication: SLE
  8. PREDNISONE [Suspect]

REACTIONS (2)
  - Foetal death [Recovered/Resolved]
  - Exposure during pregnancy [Recovered/Resolved]
